FAERS Safety Report 14690638 (Version 1)
Quarter: 2018Q1

REPORT INFORMATION
  Report Type: Not Available
  Country: US (occurrence: US)
  Receive Date: 20180328
  Receipt Date: 20180328
  Transmission Date: 20180509
  Serious: Yes (Other)
  Sender: FDA-Public Use
  Company Number: US-NEUROCRINE BIOSCIENCES INC.-2018NBI00823

PATIENT
  Age: 49 Year
  Sex: Male
  Weight: 99.88 kg

DRUGS (11)
  1. PRAZOSIN. [Concomitant]
     Active Substance: PRAZOSIN
  2. SENNA [Concomitant]
     Active Substance: SENNA LEAF\SENNOSIDES\SENNOSIDES A AND B
  3. PAROXETINE. [Concomitant]
     Active Substance: PAROXETINE
  4. VITAMIN E [Concomitant]
     Active Substance: .ALPHA.-TOCOPHEROL
  5. GINKGO BILOBA [Concomitant]
     Active Substance: GINKGO
  6. VITAMIN D [Concomitant]
     Active Substance: CHOLECALCIFEROL
  7. LEVOTHYROXINE. [Concomitant]
     Active Substance: LEVOTHYROXINE
  8. INGREZZA [Suspect]
     Active Substance: VALBENAZINE
     Indication: TARDIVE DYSKINESIA
     Route: 048
     Dates: start: 20180302, end: 20180306
  9. SEROQUEL [Concomitant]
     Active Substance: QUETIAPINE FUMARATE
  10. MEN^S MULTIVITAMIN [Concomitant]
  11. FISH OIL [Concomitant]
     Active Substance: FISH OIL

REACTIONS (5)
  - Compulsions [Unknown]
  - Depressed mood [Unknown]
  - Anger [Unknown]
  - Intentional self-injury [Unknown]
  - Irritability [Unknown]

NARRATIVE: CASE EVENT DATE: 201803
